FAERS Safety Report 6153238-X (Version None)
Quarter: 2009Q2

REPORT INFORMATION
  Report Type: 
  Country: None (occurrence: None)
  Receive Date: 20090413
  Receipt Date: 20090406
  Transmission Date: 20091009
  Serious: Yes (Hospitalization, Other)
  Sender: FDA-Public Use
  Company Number: US-ELI_LILLY_AND_COMPANY-US200904001209

PATIENT
  Sex: Female

DRUGS (4)
  1. FORTEO [Suspect]
     Dates: start: 20070401
  2. COUMADIN [Concomitant]
     Indication: THROMBOSIS
     Dates: start: 20090101
  3. LANTUS [Concomitant]
  4. NOVOLOG [Concomitant]

REACTIONS (4)
  - ACCIDENTAL OVERDOSE [None]
  - DIABETES MELLITUS [None]
  - MEDICATION ERROR [None]
  - THROMBOSIS [None]
